FAERS Safety Report 7311971-8 (Version None)
Quarter: 2011Q1

REPORT INFORMATION
  Report Type: 
  Country: None (occurrence: None)
  Receive Date: 20110224
  Receipt Date: 20110222
  Transmission Date: 20110831
  Serious: Yes (Hospitalization, Other)
  Sender: FDA-Public Use
  Company Number: US-PFIZER INC-2011038860

PATIENT
  Sex: Female
  Weight: 56.689 kg

DRUGS (17)
  1. FLECTOR [Concomitant]
     Indication: BACK PAIN
     Dosage: 1.3 %, 1X/DAY
     Route: 061
  2. FLECTOR [Concomitant]
     Indication: ARTHRALGIA
  3. FLECTOR [Concomitant]
     Indication: PAIN
  4. CELEBREX [Suspect]
     Indication: INTERVERTEBRAL DISC PROTRUSION
  5. CELEBREX [Suspect]
     Indication: TENDONITIS
  6. CAMPRAL [Concomitant]
     Indication: ALCOHOLISM
  7. CELEBREX [Suspect]
     Indication: EXOSTOSIS
  8. XANAX [Suspect]
     Indication: ANXIETY
     Dosage: 25 MG, UNK
     Route: 048
  9. PRISTIQ [Concomitant]
     Indication: DEPRESSION
     Dosage: 50 MG, 1X/DAY
     Route: 048
  10. NEXIUM [Concomitant]
     Indication: GASTROOESOPHAGEAL REFLUX DISEASE
     Dosage: 40 MG, 1X/DAY
     Route: 048
  11. CELEBREX [Suspect]
     Indication: ARTHRITIS
     Dosage: 200 MG, UNK
     Route: 048
     Dates: start: 20070201
  12. DOXEPIN HCL [Suspect]
     Dosage: 10 MG, 1X/DAY
     Route: 048
     Dates: start: 20100101
  13. GABAPENTIN [Concomitant]
     Indication: ANXIETY
     Dosage: 300 MG, 3X/DAY
     Route: 048
     Dates: start: 20110101
  14. CELEBREX [Suspect]
     Indication: CARPAL TUNNEL SYNDROME
  15. CELEBREX [Suspect]
     Indication: BONE DISORDER
  16. CAMPRAL [Concomitant]
     Indication: NICOTINE DEPENDENCE
     Dosage: 333 MG, 3X/DAY
     Route: 048
  17. NICODERM [Concomitant]
     Indication: SMOKING CESSATION THERAPY
     Dosage: 21 MG, UNK
     Route: 062

REACTIONS (6)
  - DRY MOUTH [None]
  - TONGUE NEOPLASM MALIGNANT STAGE UNSPECIFIED [None]
  - LUNG NEOPLASM [None]
  - PAIN [None]
  - DRUG INEFFECTIVE [None]
  - BREAST CANCER FEMALE [None]
